FAERS Safety Report 19797033 (Version 3)
Quarter: 2025Q3

REPORT INFORMATION
  Report Type: Spontaneous
  Country: EU (occurrence: EU)
  Receive Date: 20210907
  Receipt Date: 20250912
  Transmission Date: 20251021
  Serious: Yes (Other)
  Sender: MYLAN
  Company Number: EU-ARISTO PHARMA-BUPR202103132

PATIENT
  Age: 39 Year
  Sex: Male

DRUGS (10)
  1. BUPRENORPHINE [Interacting]
     Active Substance: BUPRENORPHINE
     Indication: Product used for unknown indication
  2. TEMAZEPAM [Interacting]
     Active Substance: TEMAZEPAM
     Indication: Product used for unknown indication
  3. PREGABALIN [Interacting]
     Active Substance: PREGABALIN
     Indication: Product used for unknown indication
  4. OXAZEPAM [Interacting]
     Active Substance: OXAZEPAM
     Indication: Product used for unknown indication
  5. ALCOHOL [Interacting]
     Active Substance: ALCOHOL
     Indication: Product used for unknown indication
  6. DIAZEPAM [Interacting]
     Active Substance: DIAZEPAM
     Indication: Product used for unknown indication
  7. CLONAZEPAM [Interacting]
     Active Substance: CLONAZEPAM
     Indication: Product used for unknown indication
  8. LEVOMETHADONE [Interacting]
     Active Substance: LEVOMETHADONE
     Indication: Product used for unknown indication
  9. NORDAZEPAM [Interacting]
     Active Substance: NORDAZEPAM
     Indication: Product used for unknown indication
  10. LORAZEPAM [Interacting]
     Active Substance: LORAZEPAM
     Indication: Product used for unknown indication

REACTIONS (18)
  - Fine motor skill dysfunction [Unknown]
  - Coordination abnormal [Unknown]
  - Bradyphrenia [Unknown]
  - Dysarthria [Unknown]
  - Emotional distress [Unknown]
  - Gait disturbance [Unknown]
  - Somnolence [Unknown]
  - Feeling abnormal [Unknown]
  - Impaired driving ability [Unknown]
  - Miosis [Unknown]
  - Aggression [Unknown]
  - Psychotic disorder [Unknown]
  - Drug dependence [Unknown]
  - Drug interaction [Unknown]
  - Substance abuse [Unknown]
  - Drug abuse [Unknown]
  - Daydreaming [Unknown]
  - Agitation [Unknown]
